FAERS Safety Report 6147861-6 (Version None)
Quarter: 2009Q2

REPORT INFORMATION
  Report Type: 
  Country: None (occurrence: None)
  Receive Date: 20090402
  Receipt Date: 20090318
  Transmission Date: 20091009
  Serious: Yes (Other)
  Sender: FDA-Public Use
  Company Number: 2009S1004798

PATIENT
  Age: 48 Year
  Sex: Male

DRUGS (4)
  1. VALPROIC ACID [Suspect]
     Indication: CONVULSION
  2. TEMOZOLOMIDE [Concomitant]
  3. METHYLPREDNISOLONE 4MG TAB [Concomitant]
  4. CILENGITIDE [Concomitant]

REACTIONS (5)
  - COAGULOPATHY [None]
  - HEPATITIS CHOLESTATIC [None]
  - HEPATOTOXICITY [None]
  - LIVER INJURY [None]
  - PANCREATIC ENZYMES INCREASED [None]
